FAERS Safety Report 8134209-0 (Version None)
Quarter: 2012Q1

REPORT INFORMATION
  Report Type: 
  Country: None (occurrence: None)
  Receive Date: 20120209
  Receipt Date: 20120203
  Transmission Date: 20120608
  Serious: Yes (Other)
  Sender: FDA-Public Use
  Company Number: USA/USA/12/0022933

PATIENT

DRUGS (2)
  1. PROGRAF [Suspect]
     Indication: TRANSPLANT
  2. TACROLIMUS [Suspect]
     Indication: TRANSPLANT

REACTIONS (2)
  - NEUROTOXICITY [None]
  - MENINGITIS [None]
